FAERS Safety Report 8816278 (Version 1)
Quarter: 2012Q4

REPORT INFORMATION
  Report Type: Spontaneous
  Country: US (occurrence: None)
  Receive Date: 20120928
  Receipt Date: 20120928
  Transmission Date: 20130627
  Serious: Yes (Other)
  Sender: FDA-Public Use
  Company Number: None

PATIENT
  Age: 79 Year
  Sex: Female
  Weight: 79.83 kg

DRUGS (2)
  1. PRAVASTATIN [Suspect]
     Indication: WEAKNESS MUSCLE
     Dosage: 1 Tab daily 40mg daily
     Dates: start: 201201
  2. LOSARTAN [Suspect]
     Indication: WEAKNESS MUSCLE
     Dosage: 1 tab 100mg daily
     Dates: start: 201201

REACTIONS (2)
  - Muscle atrophy [None]
  - Gait disturbance [None]
